FAERS Safety Report 9641625 (Version 2)
Quarter: 2013Q4

REPORT INFORMATION
  Report Type: Spontaneous
  Country: FR (occurrence: FR)
  Receive Date: 20131023
  Receipt Date: 20131101
  Transmission Date: 20140711
  Serious: Yes (Hospitalization)
  Sender: FDA-Public Use
  Company Number: FR-GLAXOSMITHKLINE-B0932333A

PATIENT
  Age: 66 Year
  Sex: Male
  Weight: 108 kg

DRUGS (12)
  1. ZELITREX [Suspect]
     Indication: REFRACTORY ANAEMIA WITH AN EXCESS OF BLASTS
     Dosage: 1G PER DAY
     Route: 048
     Dates: start: 201305, end: 201309
  2. VIDAZA [Suspect]
     Indication: REFRACTORY ANAEMIA WITH AN EXCESS OF BLASTS
     Dates: start: 201305, end: 201309
  3. ZYTIGA [Concomitant]
     Dates: start: 201302
  4. SOLUPRED [Concomitant]
     Dosage: 5MG PER DAY
     Dates: start: 201302
  5. XGEVA [Concomitant]
     Dates: start: 201302
  6. CACIT D3 [Concomitant]
     Dates: start: 201302
  7. NOXAFIL [Concomitant]
     Dosage: 200MG THREE TIMES PER DAY
     Dates: start: 201305
  8. TAZOCILLINE [Concomitant]
     Indication: INFECTION
     Dosage: 4G PER DAY
     Route: 042
     Dates: start: 20130919
  9. FLAGYL [Concomitant]
     Indication: INFECTION
     Dosage: 500MG PER DAY
     Dates: start: 20130919, end: 20130925
  10. MORPHINE [Concomitant]
     Indication: ARTHRALGIA
     Dates: start: 20130916
  11. CORDARONE [Concomitant]
     Dosage: 200MG PER DAY
     Dates: start: 201306
  12. CALCIPARINE [Concomitant]

REACTIONS (2)
  - Renal failure acute [Recovered/Resolved]
  - Anuria [Recovered/Resolved]
